APPROVED DRUG PRODUCT: HYDROCODONE BITARTRATE AND HOMATROPINE METHYLBROMIDE
Active Ingredient: HOMATROPINE METHYLBROMIDE; HYDROCODONE BITARTRATE
Strength: 1.5MG/5ML;5MG/5ML
Dosage Form/Route: SYRUP;ORAL
Application: A088017 | Product #001 | TE Code: AA
Applicant: ACTAVIS MID ATLANTIC LLC
Approved: Jul 5, 1983 | RLD: No | RS: No | Type: RX